FAERS Safety Report 10771348 (Version 2)
Quarter: 2015Q1

REPORT INFORMATION
  Report Type: Spontaneous
  Country: US (occurrence: US)
  Receive Date: 20150206
  Receipt Date: 20150327
  Transmission Date: 20150721
  Serious: Yes (Hospitalization, Other)
  Sender: FDA-Public Use
  Company Number: US-PFIZER INC-2015048710

PATIENT
  Sex: Female
  Weight: 45 kg

DRUGS (3)
  1. LYRICA [Concomitant]
     Active Substance: PREGABALIN
     Dosage: UNK
  2. CHANTIX [Suspect]
     Active Substance: VARENICLINE TARTRATE
     Dosage: UNK
     Dates: start: 201412
  3. CLONAZEPAM. [Concomitant]
     Active Substance: CLONAZEPAM
     Dosage: UNK

REACTIONS (13)
  - Aggression [Unknown]
  - Crying [Unknown]
  - Feeling abnormal [Unknown]
  - Hallucination [Unknown]
  - Anger [Unknown]
  - Screaming [Unknown]
  - Kidney infection [Unknown]
  - Suicidal ideation [Unknown]
  - Abnormal behaviour [Unknown]
  - Hostility [Unknown]
  - Insomnia [Unknown]
  - Cognitive disorder [Unknown]
  - Agitation [Unknown]

NARRATIVE: CASE EVENT DATE: 2015
